FAERS Safety Report 15004585 (Version 1)
Quarter: 2018Q2

REPORT INFORMATION
  Report Type: Spontaneous
  Country: US (occurrence: US)
  Receive Date: 20180521
  Receipt Date: 20180521
  Transmission Date: 20180711
  Serious: Yes (Hospitalization)
  Sender: FDA-Public Use
  Company Number: None

PATIENT
  Age: 50 Year
  Sex: Male
  Weight: 94.3 kg

DRUGS (9)
  1. REGORAFENIB. [Suspect]
     Active Substance: REGORAFENIB
     Indication: CHEMOTHERAPY
     Dosage: OTHER FREQUENCY:3 WKS ON 1 WEEK OF;?
     Route: 048
     Dates: start: 201702
  2. EDARBYCLOR [Concomitant]
     Active Substance: AZILSARTAN KAMEDOXOMIL\CHLORTHALIDONE
  3. LOPRESSOR [Concomitant]
     Active Substance: METOPROLOL TARTRATE
  4. NARCAN [Concomitant]
     Active Substance: NALOXONE HYDROCHLORIDE
  5. UREA. [Concomitant]
     Active Substance: UREA
  6. PRILOSEC [Concomitant]
     Active Substance: OMEPRAZOLE MAGNESIUM
  7. OXYCODONE/APAP 10/325MG [Suspect]
     Active Substance: ACETAMINOPHEN\OXYCODONE HYDROCHLORIDE
  8. MS CONTIN [Suspect]
     Active Substance: MORPHINE SULFATE
     Indication: PAIN
     Route: 048
  9. ZOFRAN [Concomitant]
     Active Substance: ONDANSETRON HYDROCHLORIDE

REACTIONS (4)
  - Disorientation [None]
  - Confusional state [None]
  - Lethargy [None]
  - Ammonia increased [None]

NARRATIVE: CASE EVENT DATE: 20180207
